FAERS Safety Report 15498828 (Version 1)
Quarter: 2018Q4

REPORT INFORMATION
  Report Type: Spontaneous
  Country: FR (occurrence: FR)
  Receive Date: 20181015
  Receipt Date: 20181015
  Transmission Date: 20190205
  Serious: Yes (Other)
  Sender: FDA-Public Use
  Company Number: PHHY2018FR122400

PATIENT
  Age: 71 Year
  Sex: Female

DRUGS (2)
  1. EBIXA [Suspect]
     Active Substance: MEMANTINE HYDROCHLORIDE
     Indication: DEMENTIA ALZHEIMER^S TYPE
     Dosage: INCONNUE
     Route: 048
  2. EXELON [Suspect]
     Active Substance: RIVASTIGMINE TARTRATE
     Indication: DEMENTIA ALZHEIMER^S TYPE
     Dosage: INCONNUE
     Route: 048

REACTIONS (2)
  - Dementia Alzheimer^s type [Not Recovered/Not Resolved]
  - Product administration interrupted [Not Recovered/Not Resolved]

NARRATIVE: CASE EVENT DATE: 2018
